FAERS Safety Report 9502863 (Version 2)
Quarter: 2013Q3

REPORT INFORMATION
  Report Type: Spontaneous
  Country: US (occurrence: None)
  Receive Date: 20130225
  Receipt Date: 20130909
  Transmission Date: 20140515
  Serious: Yes (Other)
  Sender: FDA-Public Use
  Company Number: 365999

PATIENT
  Age: 62 Year
  Sex: Male
  Weight: 149.7 kg

DRUGS (8)
  1. VICTOZA [Suspect]
     Indication: TYPE 2 DIABETES MELLITUS
     Route: 058
     Dates: start: 20120521, end: 20120717
  2. ALLOPURINOL (ALLIOURINOL) [Concomitant]
  3. TRICOR /00090101/ (ADENOSINE) [Concomitant]
  4. GLUCOVANCE (GLIBENCLAMIDE, METFORMIN HYDROCHLORIDE) [Concomitant]
  5. BYSTOLC (NEBIVOLOL HYDROCHLORIDE) [Concomitant]
  6. IRON (IRON) [Concomitant]
  7. LISINOPRIL (LISINOPRIL) [Concomitant]
  8. GLYBURIDE (GLIBECLAMIDE) [Concomitant]

REACTIONS (1)
  - Renal failure [None]
